FAERS Safety Report 9034290 (Version 1)
Quarter: 2013Q1

REPORT INFORMATION
  Report Type: Spontaneous
  Country: US (occurrence: None)
  Receive Date: 20130116
  Receipt Date: 20130116
  Transmission Date: 20140127
  Serious: Yes (Life-Threatening, Hospitalization)
  Sender: FDA-Public Use
  Company Number: None

PATIENT
  Age: 13 Year
  Sex: Female
  Weight: 122.5 kg

DRUGS (1)
  1. NORGESTIMATE ETHINYL ESTRADIOL [Suspect]
     Route: 048

REACTIONS (3)
  - Menorrhagia [None]
  - Pulmonary embolism [None]
  - Incorrect dose administered [None]
